FAERS Safety Report 4335569-9 (Version None)
Quarter: 2004Q2

REPORT INFORMATION
  Report Type: 
  Country: None (occurrence: None)
  Receive Date: 20040409
  Receipt Date: 20040216
  Transmission Date: 20050107
  Serious: Yes (Disabling)
  Sender: FDA-Public Use
  Company Number: DE-MERCK-0402DEU00132

PATIENT
  Age: 34 Year
  Sex: Male
  Weight: 75 kg

DRUGS (6)
  1. ASPIRIN [Concomitant]
     Route: 048
     Dates: start: 19890101
  2. ATORVASTATIN CALCIUM [Concomitant]
     Route: 048
  3. ZETIA [Suspect]
     Indication: TYPE IIA HYPERLIPIDAEMIA
     Route: 048
     Dates: start: 20030801, end: 20040201
  4. ZETIA [Suspect]
     Route: 048
     Dates: start: 20040301
  5. FOLIC ACID [Concomitant]
     Route: 048
     Dates: start: 20030101
  6. NEBIVOLOL HYDROCHLORIDE [Concomitant]
     Route: 048
     Dates: start: 19990101

REACTIONS (1)
  - DERMATITIS [None]
